FAERS Safety Report 18969202 (Version 4)
Quarter: 2021Q3

REPORT INFORMATION
  Report Type: Spontaneous
  Country: DE (occurrence: DE)
  Receive Date: 20210304
  Receipt Date: 20210915
  Transmission Date: 20211014
  Serious: Yes (Hospitalization, Other)
  Sender: FDA-Public Use
  Company Number: PHHY2019DE106418

PATIENT
  Age: 66 Year
  Sex: Male
  Weight: 99 kg

DRUGS (10)
  1. VALSARTAN ? 1 A PHARMA [Suspect]
     Active Substance: VALSARTAN
     Indication: HYPERTENSION
     Dosage: 160 MG, QD (MORNINGS)
     Route: 065
     Dates: start: 2015, end: 201803
  2. AMLODIPINE [Concomitant]
     Active Substance: AMLODIPINE BESYLATE
     Indication: PRODUCT USED FOR UNKNOWN INDICATION
     Dosage: 0.5 DF, QD (IN EVENING)
     Route: 048
  3. NACL [Concomitant]
     Active Substance: SODIUM CHLORIDE
     Indication: HYPERTENSION
     Dosage: 1 LITRE
     Route: 065
     Dates: start: 20201108, end: 20201108
  4. NACL [Concomitant]
     Active Substance: SODIUM CHLORIDE
     Dosage: 1 LITRE
     Route: 065
     Dates: start: 20210102, end: 20210102
  5. VALSACOR [Concomitant]
     Active Substance: VALSARTAN
     Indication: HYPERTENSION
     Dosage: 160 MG, BID
     Route: 065
     Dates: start: 20180716
  6. FILGRASTIM [Concomitant]
     Active Substance: FILGRASTIM
     Indication: HYPERTENSION
     Dosage: UNK
     Route: 065
     Dates: start: 20201222
  7. CANDESARTAN RATIO [Concomitant]
     Indication: PRODUCT USED FOR UNKNOWN INDICATION
     Dosage: 0.5 DF, QD (IN EVENING)
     Route: 048
  8. VALSARTAN ? 1 A PHARMA [Suspect]
     Active Substance: VALSARTAN
     Dosage: UNK (HALF A TABLET OF 320 MG, MORNING/ IN EVENINGS)
     Route: 065
     Dates: start: 20180319, end: 20180716
  9. CARAMLO [Suspect]
     Active Substance: AMLODIPINE BESYLATE\CANDESARTAN CILEXETIL
     Indication: ESSENTIAL HYPERTENSION
     Dosage: UNK
     Route: 065
  10. NACL [Concomitant]
     Active Substance: SODIUM CHLORIDE
     Dosage: 1 LITRE
     Route: 065
     Dates: start: 20210106, end: 20210106

REACTIONS (40)
  - Cough [Unknown]
  - Arrhythmia [Unknown]
  - Neutropenia [Unknown]
  - Anxiety [Unknown]
  - Emotional distress [Unknown]
  - Dyspnoea exertional [Unknown]
  - Leukopenia [Not Recovered/Not Resolved]
  - Anaemia [Unknown]
  - Dry mouth [Unknown]
  - Renal cyst [Unknown]
  - Abdominal pain [Unknown]
  - Osteochondrosis [Unknown]
  - Hypertonia [Unknown]
  - Gene mutation [Unknown]
  - Hepatic lesion [Unknown]
  - Hepatic steatosis [Not Recovered/Not Resolved]
  - Fatigue [Recovering/Resolving]
  - Nephrolithiasis [Unknown]
  - Mental disorder [Unknown]
  - Palpitations [Unknown]
  - Sleep disorder [Unknown]
  - Disturbance in attention [Unknown]
  - Haemangioma of liver [Unknown]
  - Obesity [Unknown]
  - Blood creatinine increased [Unknown]
  - Product contamination [Unknown]
  - Dyspnoea [Unknown]
  - Gastrointestinal disorder [Unknown]
  - Mucosal inflammation [Unknown]
  - Nocturia [Unknown]
  - Lung neoplasm malignant [Recovering/Resolving]
  - Diverticulitis [Unknown]
  - Lung consolidation [Unknown]
  - Metastases to lung [Recovering/Resolving]
  - General physical health deterioration [Unknown]
  - Thrombocytopenia [Not Recovered/Not Resolved]
  - Quality of life decreased [Unknown]
  - TP53 gene mutation [Unknown]
  - Dehydration [Unknown]
  - Diarrhoea [Unknown]

NARRATIVE: CASE EVENT DATE: 2017
